FAERS Safety Report 7660596-3 (Version None)
Quarter: 2011Q3

REPORT INFORMATION
  Report Type: 
  Country: None (occurrence: None)
  Receive Date: 20110805
  Receipt Date: 20101029
  Transmission Date: 20111222
  Serious: No
  Sender: FDA-Public Use
  Company Number: US-ABBOTT-10P-163-0682742-00

PATIENT
  Age: 64 Year
  Sex: Female

DRUGS (9)
  1. NIASPAN [Suspect]
     Dates: start: 20101027
  2. ASPIRIN [Concomitant]
     Indication: PRODUCT USED FOR UNKNOWN INDICATION
  3. FOLIC ACID [Concomitant]
     Indication: VITAMIN SUPPLEMENTATION
  4. PROTONIX [Concomitant]
     Indication: GASTRIC DISORDER
  5. AVAPRO [Concomitant]
     Indication: HYPERTENSION
  6. SIMVASTATIN [Concomitant]
     Indication: BLOOD CHOLESTEROL INCREASED
  7. NIASPAN [Suspect]
     Indication: BLOOD TRIGLYCERIDES INCREASED
     Dosage: STARTED 1/2 TABLETS
     Dates: start: 20100831, end: 20100901
  8. NIASPAN [Suspect]
     Dates: start: 20101025, end: 20101027
  9. NIASPAN [Suspect]
     Dates: start: 20100901, end: 20101025

REACTIONS (4)
  - WRONG TECHNIQUE IN DRUG USAGE PROCESS [None]
  - RASH [None]
  - PRURITUS [None]
  - URTICARIA [None]
